FAERS Safety Report 5662045-3 (Version None)
Quarter: 2008Q1

REPORT INFORMATION
  Report Type: 
  Country: None (occurrence: None)
  Receive Date: 20080312
  Receipt Date: 20080229
  Transmission Date: 20080703
  Serious: No
  Sender: FDA-Public Use
  Company Number: US-ELI_LILLY_AND_COMPANY-US200802006935

PATIENT
  Sex: Female

DRUGS (8)
  1. CYMBALTA [Suspect]
     Indication: DEPRESSION
     Dosage: 150 MG, UNK
     Dates: start: 20080101
  2. CYMBALTA [Suspect]
     Dosage: 60 MG, DAILY (1/D)
  3. NEURONTIN [Concomitant]
     Dosage: 2700 MG, UNK
  4. KLONOPIN [Concomitant]
     Dosage: 6 MG, UNK
  5. WELLBUTRIN [Concomitant]
  6. LITHIUM [Concomitant]
  7. FOLIC ACID [Concomitant]
  8. ASPIRIN [Concomitant]

REACTIONS (9)
  - ABDOMINAL PAIN UPPER [None]
  - DRUG INEFFECTIVE [None]
  - HEPATIC ENZYME INCREASED [None]
  - INFLUENZA LIKE ILLNESS [None]
  - MALAISE [None]
  - PHARMACEUTICAL PRODUCT COMPLAINT [None]
  - URINARY RETENTION [None]
  - URINARY TRACT INFECTION [None]
  - WEIGHT INCREASED [None]
